FAERS Safety Report 18604745 (Version 1)
Quarter: 2020Q4

REPORT INFORMATION
  Report Type: Spontaneous
  Country: US (occurrence: US)
  Receive Date: 20201211
  Receipt Date: 20201211
  Transmission Date: 20210114
  Serious: No
  Sender: FDA-Public Use
  Company Number: None

PATIENT
  Age: 67 Year
  Sex: Female
  Weight: 71.1 kg

DRUGS (6)
  1. CIPROFLOXACIN. [Suspect]
     Active Substance: CIPROFLOXACIN
     Indication: DIVERTICULITIS
     Dosage: ?          QUANTITY:1 TABLET(S);?
     Route: 048
     Dates: start: 20201208, end: 20201210
  2. METRONIDAZOLE. [Suspect]
     Active Substance: METRONIDAZOLE
     Indication: DIVERTICULITIS
     Dosage: ?          QUANTITY:1 TABLET(S);?
     Route: 048
     Dates: start: 20201208, end: 20201210
  3. TURMERIC/OMEGA 3 [Concomitant]
  4. CALCIUM/VITAMIN D [Concomitant]
     Active Substance: CALCIUM\VITAMIN D
  5. PROBIOTIC [Concomitant]
     Active Substance: PROBIOTICS NOS
  6. MILK THISTLE [Concomitant]
     Active Substance: DIETARY SUPPLEMENT\HERBALS\MILK THISTLE

REACTIONS (9)
  - Paraesthesia [None]
  - Dysphemia [None]
  - Headache [None]
  - Dizziness [None]
  - Nervousness [None]
  - Confusional state [None]
  - Asthenia [None]
  - Nausea [None]
  - Crying [None]

NARRATIVE: CASE EVENT DATE: 20201210
